FAERS Safety Report 10488349 (Version 1)
Quarter: 2014Q4

REPORT INFORMATION
  Report Type: Spontaneous
  Country: NL (occurrence: NL)
  Receive Date: 20141002
  Receipt Date: 20141002
  Transmission Date: 20150528
  Serious: Yes (Hospitalization)
  Sender: FDA-Public Use
  Company Number: NL-009507513-1410NLD000101

PATIENT
  Age: 61 Year
  Sex: Female
  Weight: 60 kg

DRUGS (2)
  1. ACETYLSALICYLZUUR CARDIO CF [Concomitant]
     Dosage: ONCE A DAY 1 PIECE
     Route: 048
     Dates: start: 2002
  2. AMITRIPTYLINE HYDROCHLORIDE. [Suspect]
     Active Substance: AMITRIPTYLINE HYDROCHLORIDE
     Indication: BURNOUT SYNDROME
     Dosage: ONCE A DAY 3 PIECES
     Route: 048
     Dates: start: 201312

REACTIONS (1)
  - Ileus [Recovering/Resolving]

NARRATIVE: CASE EVENT DATE: 201408
